FAERS Safety Report 7597645-7 (Version None)
Quarter: 2011Q3

REPORT INFORMATION
  Report Type: 
  Country: None (occurrence: None)
  Receive Date: 20110708
  Receipt Date: 20110630
  Transmission Date: 20111222
  Serious: Yes (Hospitalization)
  Sender: FDA-Public Use
  Company Number: BR-GENENTECH-307109

PATIENT
  Sex: Female
  Weight: 62 kg

DRUGS (2)
  1. RITUXIMAB [Suspect]
     Indication: RHEUMATOID ARTHRITIS
     Dosage: 1000 MG, Q14D
     Route: 042
     Dates: start: 20091229, end: 20100127
  2. OSCAL [Concomitant]
     Indication: OSTEOPOROSIS
     Dosage: UNK

REACTIONS (4)
  - INTERVERTEBRAL DISC PROTRUSION [None]
  - PAIN [None]
  - DEVICE INTOLERANCE [None]
  - ABASIA [None]
